FAERS Safety Report 21649604 (Version 1)
Quarter: 2022Q4

REPORT INFORMATION
  Report Type: Spontaneous
  Country: FR (occurrence: FR)
  Receive Date: 20221128
  Receipt Date: 20221128
  Transmission Date: 20230113
  Serious: Yes (Other)
  Sender: FDA-Public Use
  Company Number: FR-EXELTIS PHARMACEUTICAL HOLDING, S.L.-2211FR04899

PATIENT
  Age: 24 Year
  Sex: Female

DRUGS (1)
  1. DROSPIRENONE [Suspect]
     Active Substance: DROSPIRENONE
     Indication: Dysmenorrhoea
     Dosage: 4 MILLIGRAM, QD
     Route: 048
     Dates: start: 202205

REACTIONS (3)
  - Hyperaldosteronism [Unknown]
  - Hypertensive crisis [Unknown]
  - Off label use [Unknown]
